FAERS Safety Report 25313593 (Version 2)
Quarter: 2025Q2

REPORT INFORMATION
  Report Type: Report from Study
  Country: CN (occurrence: CN)
  Receive Date: 20250514
  Receipt Date: 20250519
  Transmission Date: 20250716
  Serious: No
  Sender: DAIICHI
  Company Number: CN-DSJP-DS-2025-131070-CN

PATIENT
  Sex: Female
  Weight: 77 kg

DRUGS (48)
  1. ENHERTU [Suspect]
     Active Substance: FAM-TRASTUZUMAB DERUXTECAN-NXKI
     Indication: Breast cancer
     Route: 041
     Dates: start: 20250220, end: 20250220
  2. ENHERTU [Suspect]
     Active Substance: FAM-TRASTUZUMAB DERUXTECAN-NXKI
     Route: 041
     Dates: start: 20250313, end: 20250313
  3. ENHERTU [Suspect]
     Active Substance: FAM-TRASTUZUMAB DERUXTECAN-NXKI
     Route: 041
     Dates: start: 20250403, end: 20250403
  4. DEXAMETHASONE ACETATE [Concomitant]
     Active Substance: DEXAMETHASONE ACETATE
     Indication: Prophylaxis
     Dosage: 0.75 MG, QD
     Route: 048
     Dates: start: 20250220, end: 20250221
  5. DEXAMETHASONE ACETATE [Concomitant]
     Active Substance: DEXAMETHASONE ACETATE
     Indication: Prophylaxis of nausea and vomiting
     Dosage: 0.75 MG, QD
     Route: 048
     Dates: start: 20250222, end: 20250222
  6. DEXAMETHASONE ACETATE [Concomitant]
     Active Substance: DEXAMETHASONE ACETATE
     Indication: Nausea
  7. APREPITANT [Concomitant]
     Active Substance: APREPITANT
     Indication: Prophylaxis
     Dosage: 1 DOSAGE FORM, QD
     Route: 048
     Dates: start: 20250220, end: 20250221
  8. APREPITANT [Concomitant]
     Active Substance: APREPITANT
     Indication: Prophylaxis of nausea and vomiting
     Dosage: 1 DOSAGE FORM, QD
     Route: 048
     Dates: start: 20250222, end: 20250222
  9. APREPITANT [Concomitant]
     Active Substance: APREPITANT
     Indication: Nausea
     Dosage: 1 DOSAGE FORM, QD
     Route: 048
     Dates: start: 20250313, end: 20250313
  10. DEXAMETHASONE SODIUM PHOSPHATE [Concomitant]
     Active Substance: DEXAMETHASONE SODIUM PHOSPHATE
     Indication: Prophylaxis
     Route: 042
     Dates: start: 20250220, end: 20250220
  11. DEXAMETHASONE SODIUM PHOSPHATE [Concomitant]
     Active Substance: DEXAMETHASONE SODIUM PHOSPHATE
     Indication: Prophylaxis of nausea and vomiting
     Route: 042
     Dates: start: 20250313, end: 20250313
  12. PALONOSETRON HYDROCHLORIDE [Concomitant]
     Active Substance: PALONOSETRON HYDROCHLORIDE
     Indication: Prophylaxis
     Route: 042
     Dates: start: 20250220, end: 20250220
  13. PALONOSETRON HYDROCHLORIDE [Concomitant]
     Active Substance: PALONOSETRON HYDROCHLORIDE
     Indication: Prophylaxis of nausea and vomiting
     Route: 042
     Dates: start: 20250227, end: 20250227
  14. PALONOSETRON HYDROCHLORIDE [Concomitant]
     Active Substance: PALONOSETRON HYDROCHLORIDE
     Indication: Nausea
     Route: 041
     Dates: start: 20250313, end: 20250313
  15. PALONOSETRON HYDROCHLORIDE [Concomitant]
     Active Substance: PALONOSETRON HYDROCHLORIDE
     Indication: Vomiting
  16. CIMETIDINE [Concomitant]
     Active Substance: CIMETIDINE
     Indication: Prophylaxis
     Route: 041
     Dates: start: 20250220, end: 20250220
  17. CIMETIDINE [Concomitant]
     Active Substance: CIMETIDINE
     Indication: Prophylaxis of nausea and vomiting
     Route: 041
     Dates: start: 20250227, end: 20250227
  18. CIMETIDINE [Concomitant]
     Active Substance: CIMETIDINE
     Indication: Nausea
     Route: 041
     Dates: start: 20250228, end: 20250228
  19. CIMETIDINE [Concomitant]
     Active Substance: CIMETIDINE
     Indication: Vomiting
     Route: 041
     Dates: start: 20250313, end: 20250313
  20. GLUTATHIONE [Concomitant]
     Active Substance: GLUTATHIONE
     Indication: Aspartate aminotransferase increased
     Route: 041
     Dates: start: 20250220, end: 20250220
  21. GLUTATHIONE [Concomitant]
     Active Substance: GLUTATHIONE
     Route: 041
     Dates: start: 20250313, end: 20250313
  22. ONDANSETRON [Concomitant]
     Active Substance: ONDANSETRON
     Indication: Prophylaxis
     Route: 048
     Dates: start: 20250220, end: 20250220
  23. ONDANSETRON [Concomitant]
     Active Substance: ONDANSETRON
     Indication: Prophylaxis of nausea and vomiting
     Route: 048
     Dates: start: 20250222, end: 20250225
  24. ONDANSETRON [Concomitant]
     Active Substance: ONDANSETRON
     Indication: Nausea
  25. ONDANSETRON [Concomitant]
     Active Substance: ONDANSETRON
     Indication: Vomiting
  26. COENZYME Q10 [Concomitant]
     Active Substance: DIETARY SUPPLEMENT\UBIDECARENONE
     Indication: Chest pain
     Dosage: 10 MG, TID
     Route: 048
     Dates: start: 20250224, end: 20250311
  27. GRANULOCYTE COLONY-STIMULATING FACTOR NOS [Concomitant]
     Active Substance: GRANULOCYTE COLONY-STIMULATING FACTOR NOS
     Indication: White blood cell count decreased
     Route: 058
     Dates: start: 20250227, end: 20250227
  28. GRANULOCYTE COLONY-STIMULATING FACTOR NOS [Concomitant]
     Active Substance: GRANULOCYTE COLONY-STIMULATING FACTOR NOS
     Indication: Neutrophil count decreased
     Route: 058
     Dates: start: 20250228, end: 20250228
  29. APREPITANT [Concomitant]
     Active Substance: APREPITANT
     Indication: Nausea
     Route: 041
     Dates: start: 20250227, end: 20250227
  30. APREPITANT [Concomitant]
     Active Substance: APREPITANT
     Indication: Vomiting
  31. ROMIPLOSTIM [Concomitant]
     Active Substance: ROMIPLOSTIM
     Indication: Platelet count decreased
     Route: 058
     Dates: start: 20250227, end: 20250227
  32. VITAMIN C [Concomitant]
     Active Substance: ASCORBIC ACID
     Indication: Fluid replacement
     Route: 041
     Dates: start: 20250227, end: 20250227
  33. VITAMIN C [Concomitant]
     Active Substance: ASCORBIC ACID
     Route: 041
     Dates: start: 20250228, end: 20250228
  34. VITAMIN B6 [Concomitant]
     Active Substance: PYRIDOXINE HYDROCHLORIDE
     Indication: Fluid replacement
     Route: 041
     Dates: start: 20250227, end: 20250227
  35. VITAMIN B6 [Concomitant]
     Active Substance: PYRIDOXINE HYDROCHLORIDE
     Route: 041
     Dates: start: 20250228, end: 20250228
  36. COMPOUND ZAOFAN [Concomitant]
     Indication: White blood cell count decreased
     Dosage: 9 DOSAGE FORM, TID
     Route: 048
     Dates: start: 20250227, end: 20250312
  37. COMPOUND ZAOFAN [Concomitant]
     Indication: Platelet count decreased
     Dosage: 9 DOSAGE FORM, TID
     Route: 048
     Dates: start: 20250313, end: 20250411
  38. COMPOUND ZAOFAN [Concomitant]
     Indication: Prophylaxis
  39. COMPOUND ZAOFAN [Concomitant]
     Indication: Thrombocytopenia
  40. LEUCOGEN [Concomitant]
     Active Substance: LEUCOGEN
     Indication: White blood cell count decreased
     Dosage: 20 MG, TID
     Route: 048
     Dates: start: 20250227, end: 20250312
  41. LEUCOGEN [Concomitant]
     Active Substance: LEUCOGEN
     Indication: Platelet count decreased
  42. LIVER PROTECT [Concomitant]
     Indication: Aspartate aminotransferase increased
     Dosage: 3 DOSAGE FORM, TID
     Route: 048
     Dates: start: 202406, end: 20250212
  43. LIVER PROTECT [Concomitant]
     Indication: Prophylaxis
     Dosage: 3 DOSAGE FORM, TID
     Route: 048
     Dates: start: 20250213, end: 20250402
  44. LIVER PROTECT [Concomitant]
     Indication: Prophylaxis
  45. RACEANISODAMINE [Concomitant]
     Active Substance: RACEANISODAMINE
     Indication: Gastrointestinal disorder
     Dosage: 2 DOSAGE FORM, TID
     Route: 048
     Dates: start: 20250218, end: 20250309
  46. ANF-RHO [Concomitant]
     Active Substance: ANF-RHO
     Indication: Prophylaxis
     Route: 058
     Dates: start: 20250313, end: 20250313
  47. ANF-RHO [Concomitant]
     Active Substance: ANF-RHO
     Indication: White blood cell count decreased
  48. ANF-RHO [Concomitant]
     Active Substance: ANF-RHO
     Indication: Neutropenia

REACTIONS (2)
  - Alopecia [Not Recovered/Not Resolved]
  - Anaemia [Not Recovered/Not Resolved]

NARRATIVE: CASE EVENT DATE: 20250313
